FAERS Safety Report 6651182-2 (Version None)
Quarter: 2010Q1

REPORT INFORMATION
  Report Type: 
  Country: None (occurrence: None)
  Receive Date: 20100325
  Receipt Date: 20100322
  Transmission Date: 20100710
  Serious: Yes (Death, Hospitalization)
  Sender: FDA-Public Use
  Company Number: DE-SANOFI-AVENTIS-2010SA011305

PATIENT
  Age: 62 Year
  Sex: Female

DRUGS (11)
  1. DOCETAXEL [Suspect]
     Route: 041
     Dates: start: 20100108, end: 20100108
  2. DOCETAXEL [Suspect]
     Dosage: REDUCED DOSAGE
     Route: 041
     Dates: start: 20100219, end: 20100219
  3. CISPLATIN [Suspect]
     Route: 041
     Dates: start: 20100219, end: 20100219
  4. CISPLATIN [Suspect]
     Route: 041
     Dates: start: 20100108, end: 20100108
  5. XELODA [Suspect]
     Route: 048
     Dates: start: 20100108
  6. XELODA [Suspect]
     Route: 048
     Dates: start: 20100201, end: 20100201
  7. METFORMIN HCL [Concomitant]
     Indication: DRUG USE FOR UNKNOWN INDICATION
     Route: 048
     Dates: start: 20040101, end: 20100201
  8. BERLTHYROX [Concomitant]
     Indication: DRUG USE FOR UNKNOWN INDICATION
     Route: 048
     Dates: start: 19810101, end: 20100201
  9. MOXONIDINE [Concomitant]
     Indication: DRUG USE FOR UNKNOWN INDICATION
     Route: 048
     Dates: start: 19890101, end: 20100201
  10. ANTICHOLINERGIC AGENTS [Concomitant]
     Indication: DRUG USE FOR UNKNOWN INDICATION
     Route: 048
     Dates: start: 19890101, end: 20100201
  11. CARMEN [Concomitant]
     Indication: DRUG USE FOR UNKNOWN INDICATION
     Route: 048
     Dates: start: 19890101, end: 20100201

REACTIONS (3)
  - LEUKOPENIA [None]
  - PULMONARY EMBOLISM [None]
  - VOMITING [None]
